FAERS Safety Report 16587693 (Version 1)
Quarter: 2019Q3

REPORT INFORMATION
  Report Type: Report from Study
  Country: CA (occurrence: CA)
  Receive Date: 20190717
  Receipt Date: 20190717
  Transmission Date: 20191004
  Serious: Yes (Hospitalization, Other)
  Sender: FDA-Public Use
  Company Number: CA-GLAXOSMITHKLINE-CA2019AMR125747

PATIENT
  Sex: Male

DRUGS (1)
  1. MEPOLIZUMAB [Suspect]
     Active Substance: MEPOLIZUMAB
     Indication: ASTHMA
     Dosage: 100 MG, Z(MONTHLY)
     Route: 042
     Dates: start: 20161014

REACTIONS (6)
  - Hypercholesterolaemia [Unknown]
  - Sternal fracture [Unknown]
  - Contusion [Unknown]
  - Haematoma [Unknown]
  - Thoracic vertebral fracture [Unknown]
  - Road traffic accident [Unknown]
